FAERS Safety Report 6654759-3 (Version None)
Quarter: 2010Q1

REPORT INFORMATION
  Report Type: 
  Country: None (occurrence: None)
  Receive Date: 20100328
  Receipt Date: 20100319
  Transmission Date: 20100710
  Serious: Yes (Hospitalization)
  Sender: FDA-Public Use
  Company Number: KR-BRISTOL-MYERS SQUIBB COMPANY-14522528

PATIENT
  Age: 46 Year
  Sex: Female
  Weight: 51 kg

DRUGS (3)
  1. CETUXIMAB [Suspect]
     Indication: GASTROOESOPHAGEAL CANCER
     Dosage: STRENGTH: 5MG/ML
     Route: 042
     Dates: start: 20090212
  2. CISPLATIN [Suspect]
     Indication: GASTROOESOPHAGEAL CANCER
     Dosage: TAKEN ON DAY 1 OF CYCLE
     Route: 042
     Dates: start: 20090212
  3. CAPECITABINE [Suspect]
     Indication: GASTROOESOPHAGEAL CANCER
     Dosage: TAKEN ON DAY 1-15 FORMULATION = TABLETS RECENT ADMISSION ON 18-FEB-09
     Route: 048
     Dates: start: 20090212

REACTIONS (1)
  - DECREASED APPETITE [None]
